FAERS Safety Report 24657421 (Version 1)
Quarter: 2024Q4

REPORT INFORMATION
  Report Type: Spontaneous
  Country: GB (occurrence: GB)
  Receive Date: 20241125
  Receipt Date: 20241125
  Transmission Date: 20250114
  Serious: Yes (Other)
  Sender: AUROBINDO
  Company Number: GB-MHRA-MED-202411121222069670-ZMTPL

PATIENT
  Age: 73 Year
  Sex: Female
  Weight: 6 kg

DRUGS (2)
  1. CEPHALEXIN [Suspect]
     Active Substance: CEPHALEXIN
     Indication: Adverse drug reaction
     Dosage: UNK
     Route: 065
     Dates: start: 20241111, end: 20241112
  2. FEXOFENADINE [Concomitant]
     Active Substance: FEXOFENADINE HYDROCHLORIDE
     Indication: Product used for unknown indication
     Dosage: UNK
     Route: 065
     Dates: start: 20241112, end: 20241112

REACTIONS (3)
  - Lip swelling [Recovered/Resolved]
  - Dysphagia [Recovered/Resolved]
  - Rash [Recovering/Resolving]

NARRATIVE: CASE EVENT DATE: 20241112
